FAERS Safety Report 8660855 (Version 2)
Quarter: 2012Q4

REPORT INFORMATION
  Report Type: 
  Country: US (occurrence: US)
  Receive Date: 20120711
  Receipt Date: 20120919
  Transmission Date: 20130627
  Serious: Yes (Hospitalization)
  Sender: FDA-Public Use
  Company Number: US-ASTRAZENECA-2012SE44735

PATIENT
  Age: 53 Month
  Sex: Male
  Weight: 87.5 kg

DRUGS (19)
  1. SYMBICORT [Suspect]
     Indication: EMPHYSEMA
     Dosage: 160/ 4.5, 2 PUFFS TWO TIMES A DAY
     Route: 055
     Dates: start: 20110425
  2. SYMBICORT [Suspect]
     Indication: CHRONIC OBSTRUCTIVE PULMONARY DISEASE
     Dosage: 160/ 4.5, 2 PUFFS TWO TIMES A DAY
     Route: 055
     Dates: start: 20110425
  3. ATENOLOL [Suspect]
     Route: 048
  4. LACTULOSE [Suspect]
     Indication: FLATULENCE
     Dosage: 10 G/15 ML, 15 ML EVERY DAY
     Route: 048
     Dates: start: 201204
  5. LACTULOSE [Suspect]
     Indication: CONSTIPATION
     Dosage: 10 G/15 ML, 15 ML EVERY DAY
     Route: 048
     Dates: start: 201204
  6. LISINOPRIL [Concomitant]
  7. ALBUTEROL [Concomitant]
     Dosage: EVERY 4-6 HOURS AS REQUIRED
     Route: 055
  8. ANTI PHLEGM MEDICATION IN INHALER [Concomitant]
  9. VENTOLIN [Concomitant]
     Indication: DYSPNOEA
     Dosage: 2 PUFFS, TWO TIMES A DAY, AS REQUIRED
     Route: 055
  10. MUCOMYST [Concomitant]
  11. DUONEB [Concomitant]
     Route: 055
  12. GABAPENTIN [Concomitant]
     Route: 048
  13. GLYCOLAX [Concomitant]
     Route: 048
  14. HYDROCHLOROTHIAZIDE-LISINOPRIL [Concomitant]
     Dosage: 25+20 MG, 1 EVERY DAY
     Route: 048
  15. KETOCONAZOLE [Concomitant]
     Indication: RASH
     Dosage: TWO TIMES A DAY
     Route: 061
  16. TRIAMCINOLONE [Concomitant]
     Indication: RASH
     Dosage: TWO TIMES A DAY
     Route: 061
  17. ZANTAC [Concomitant]
     Route: 048
  18. FLUVIRIN [Concomitant]
     Indication: INFLUENZA IMMUNISATION
     Route: 030
     Dates: start: 201110
  19. PNEMONIA VACCINE [Concomitant]
     Indication: IMMUNISATION

REACTIONS (12)
  - Blood sodium decreased [Unknown]
  - Abdominal distension [Not Recovered/Not Resolved]
  - Weight increased [Unknown]
  - Abdominal pain [Not Recovered/Not Resolved]
  - Dyspnoea [Unknown]
  - Painful defaecation [Unknown]
  - Diverticulum [Unknown]
  - Hepatic steatosis [Unknown]
  - Dizziness [Unknown]
  - Hypertension [Unknown]
  - Chronic obstructive pulmonary disease [Unknown]
  - Drug ineffective [Unknown]
